FAERS Safety Report 6770576-8 (Version None)
Quarter: 2010Q2

REPORT INFORMATION
  Report Type: 
  Country: None (occurrence: None)
  Receive Date: 20100615
  Receipt Date: 20100603
  Transmission Date: 20101027
  Serious: Yes (Hospitalization, Other)
  Sender: FDA-Public Use
  Company Number: PHHY2010SE36978

PATIENT
  Sex: Female

DRUGS (3)
  1. VOLTAREN [Suspect]
     Indication: JOINT INJURY
     Dosage: UNK
     Route: 048
     Dates: start: 20090901, end: 20090910
  2. CIPROFLOXACIN [Suspect]
     Dosage: UNK
     Dates: start: 20090913
  3. CEFUROXIME [Suspect]
     Dosage: UNK
     Dates: start: 20090911, end: 20090913

REACTIONS (14)
  - ABDOMINAL PAIN UPPER [None]
  - BLOOD PRESSURE DECREASED [None]
  - BLOOD PRESSURE INCREASED [None]
  - CHILLS [None]
  - DIARRHOEA [None]
  - DIZZINESS [None]
  - GENERALISED ERYTHEMA [None]
  - HYPERSENSITIVITY [None]
  - PANCREATIC DISORDER [None]
  - PANCREATIC PSEUDOCYST [None]
  - PRURITUS GENERALISED [None]
  - PYREXIA [None]
  - TRANSAMINASES INCREASED [None]
  - VOMITING [None]
